FAERS Safety Report 8780342 (Version 1)
Quarter: 2012Q4

REPORT INFORMATION
  Report Type: Spontaneous
  Country: GB (occurrence: None)
  Receive Date: 20120828
  Receipt Date: 20120828
  Transmission Date: 20130627
  Serious: Yes (Other)
  Sender: FDA-Public Use
  Company Number: 2012AP002492

PATIENT
  Age: 53 Year
  Sex: Female

DRUGS (4)
  1. SERTRALINE (SERTRALINE) (SERTRALINE) [Suspect]
     Route: 048
     Dates: start: 20120731, end: 20120801
  2. METRONIDAZOLE [Suspect]
     Dates: start: 20120727
  3. ELLESTE-DUET (KLIOGEST) [Concomitant]
  4. ZAPAIN (PANADEINE CO) [Concomitant]

REACTIONS (3)
  - Diarrhoea [None]
  - Migraine [None]
  - Vision blurred [None]
